FAERS Safety Report 5158371-7 (Version None)
Quarter: 2006Q4

REPORT INFORMATION
  Report Type: 
  Country: None (occurrence: None)
  Receive Date: 20061128
  Receipt Date: 20060719
  Transmission Date: 20070319
  Serious: No
  Sender: FDA-Public Use
  Company Number: US-GLAXOSMITHKLINE-A0612828A

PATIENT
  Age: 77 Year
  Sex: Female

DRUGS (5)
  1. LANOXIN [Suspect]
     Indication: ATRIAL FIBRILLATION
     Dosage: .125MG PER DAY
     Route: 048
  2. COUMADIN [Concomitant]
  3. CORGARD [Concomitant]
  4. FOLIC ACID [Concomitant]
  5. LASIX [Concomitant]

REACTIONS (1)
  - WEIGHT INCREASED [None]
